FAERS Safety Report 13782700 (Version 1)
Quarter: 2017Q3

REPORT INFORMATION
  Report Type: Spontaneous
  Country: GB (occurrence: GB)
  Receive Date: 20170724
  Receipt Date: 20170724
  Transmission Date: 20171127
  Serious: Yes (Disabling, Other)
  Sender: FDA-Public Use
  Company Number: GB-MYLANLABS-2017M1042371

PATIENT

DRUGS (22)
  1. COLCHICINE. [Concomitant]
     Active Substance: COLCHICINE
     Dosage: UNTIL SYMPTOMS RESOLVE
     Dates: start: 20170118
  2. FUROSEMIDE. [Concomitant]
     Active Substance: FUROSEMIDE
     Dates: start: 20170330
  3. HYPROMELLOSE [Concomitant]
     Active Substance: HYPROMELLOSES
     Dosage: ONE TO TWO DROPS FOUR TIMES A DAY AS NEEDED
     Dates: start: 20170502
  4. TILDIEM [Concomitant]
     Active Substance: DILTIAZEM HYDROCHLORIDE
     Dates: start: 20170118
  5. CLOPIDOGREL [Concomitant]
     Active Substance: CLOPIDOGREL BISULFATE
     Dosage: 75 MG, QD
     Dates: start: 20170118
  6. EURAX [Concomitant]
     Active Substance: CROTAMITON
     Dosage: ASD
     Dates: start: 20170509
  7. KOLANTICON [Concomitant]
     Dosage: AS NEEDED, THREE TIMES DAILY
     Dates: start: 20170118
  8. ALLOPURINOL. [Concomitant]
     Active Substance: ALLOPURINOL
     Dosage: 300 MG, QD
     Dates: start: 20170118
  9. CANDESARTAN. [Concomitant]
     Active Substance: CANDESARTAN
     Dosage: NOTES FOR DISPENSER: DOSE REDUCTION. PLEASE DELIVER IMMEDIATELY
     Dates: start: 20170118
  10. OTOMIZE [Concomitant]
     Active Substance: DEXAMETHASONE\NEOMYCIN SULFATE
     Dates: start: 20170328
  11. BETAMETHASONE W/CALCIPOTRIOL [Concomitant]
     Dates: start: 20170524
  12. HIRUDOID [Concomitant]
     Active Substance: GLYCOSAMINOGLYCANS
     Dosage: ASD
     Dates: start: 20170328
  13. SUMATRIPTAN. [Concomitant]
     Active Substance: SUMATRIPTAN
     Indication: MIGRAINE
     Dosage: 1 TABLET AT THE ONSET OF MIGRAINE ATTACK. CAN REPEAT DOSE AFTER 2 HOURS IF MIGRAINE RECURS.
     Dates: start: 20170502
  14. LANSOPRAZOLE. [Suspect]
     Active Substance: LANSOPRAZOLE
     Indication: PRODUCT USED FOR UNKNOWN INDICATION
     Dates: start: 20170614, end: 20170628
  15. QUININE SULPHATE [Concomitant]
     Active Substance: QUININE SULFATE
     Dosage: AT BEDTIME
     Dates: start: 20170118
  16. GLYCERYL TRINITRATE [Concomitant]
     Active Substance: NITROGLYCERIN
     Dosage: ASD
     Route: 060
     Dates: start: 20170201
  17. LEVOTHYROXINE. [Concomitant]
     Active Substance: LEVOTHYROXINE
     Dosage: 100 ?G, QD
     Dates: start: 20170201
  18. MOMETASONE [Concomitant]
     Active Substance: MOMETASONE
     Route: 045
     Dates: start: 20170328
  19. CARBOMER [Concomitant]
     Active Substance: CARBOMER
     Dosage: EVERY NIGHT
     Dates: start: 20170502
  20. E45 [Concomitant]
     Active Substance: LANOLIN\LIGHT MINERAL OIL\PARAFFIN
     Dates: start: 20170606
  21. IBUPROFEN. [Concomitant]
     Active Substance: IBUPROFEN
     Dosage: TO THE AFFECTED AREA(S)
     Route: 061
     Dates: start: 20170201
  22. IBUGEL [Concomitant]
     Active Substance: IBUPROFEN

REACTIONS (2)
  - Suicidal ideation [Recovering/Resolving]
  - Depression [Recovering/Resolving]

NARRATIVE: CASE EVENT DATE: 20170619
